FAERS Safety Report 7012954-8 (Version None)
Quarter: 2010Q3

REPORT INFORMATION
  Report Type: 
  Country: None (occurrence: None)
  Receive Date: 20100915
  Receipt Date: 20091125
  Transmission Date: 20110219
  Serious: Yes (Other)
  Sender: FDA-Public Use
  Company Number: US-WYE-H12413309

PATIENT
  Age: 75 Year
  Sex: Female
  Weight: 49.94 kg

DRUGS (1)
  1. ADVIL [Suspect]
     Indication: BACK PAIN
     Dosage: 3 LIQUI-GELS AS NEEDED, ORAL
     Route: 048
     Dates: start: 20091101, end: 20091124

REACTIONS (1)
  - OESOPHAGEAL PAIN [None]
